FAERS Safety Report 8511980-7 (Version None)
Quarter: 2012Q2

REPORT INFORMATION
  Report Type: 
  Country: None (occurrence: None)
  Receive Date: 20120406
  Receipt Date: 20100316
  Transmission Date: 20120825
  Serious: Yes (Hospitalization)
  Sender: FDA-Public Use
  Company Number: PHEH2010US02814

PATIENT
  Sex: Male

DRUGS (3)
  1. ASPIRIN [Suspect]
  2. TASIGNA [Suspect]
     Indication: CHRONIC MYELOID LEUKAEMIA
     Dosage: 400 MG, BID,ORAL
     Route: 048
     Dates: start: 20100218, end: 20100222
  3. PLAVIX [Suspect]

REACTIONS (3)
  - ABDOMINAL DISCOMFORT [None]
  - MELAENA [None]
  - GASTRIC ULCER HAEMORRHAGE [None]
